FAERS Safety Report 9144113 (Version 1)
Quarter: 2013Q1

REPORT INFORMATION
  Report Type: Spontaneous
  Country: US (occurrence: US)
  Receive Date: 20130306
  Receipt Date: 20130306
  Transmission Date: 20140127
  Serious: Yes (Life-Threatening, Congenital Anomaly)
  Sender: FDA-Public Use
  Company Number: US-WATSON-2013-03611

PATIENT
  Sex: Female

DRUGS (8)
  1. LOSARTAN POTASSIUM (UNKNOWN) [Suspect]
     Indication: HYPERTENSION
     Dosage: 50 MG, DAILY
     Route: 064
  2. GABAPENTIN [Concomitant]
     Indication: PAIN
     Dosage: UNK, UNKNOWN
     Route: 065
  3. HYDROCHLOROTHIAZIDE [Concomitant]
     Indication: PRODUCT USED FOR UNKNOWN INDICATION
     Dosage: UNK, UNKNOWN
     Route: 065
  4. LABETALOL [Concomitant]
     Indication: HYPERTENSION
     Dosage: UNK, UNKNOWN
     Route: 065
  5. MAGNESIUM SULFATE [Concomitant]
     Indication: PROPHYLAXIS
     Dosage: UNK, UNKNOWN
     Route: 065
  6. MAGNESIUM SULFATE [Concomitant]
     Dosage: UNK
  7. BETAMETHASONE [Concomitant]
     Indication: PRODUCT USED FOR UNKNOWN INDICATION
     Dosage: UNK, UNKNOWN
     Route: 065
  8. OXYTOCIN [Concomitant]
     Indication: LABOUR INDUCTION
     Dosage: UNK, UNKNOWN
     Route: 065

REACTIONS (17)
  - Pulmonary hypertension [Unknown]
  - Hypotonia [Unknown]
  - Delayed fontanelle closure [Unknown]
  - Joint contracture [Unknown]
  - Neonatal hypotension [Unknown]
  - Oliguria [Unknown]
  - Metabolic acidosis [Unknown]
  - Hyponatraemia [Unknown]
  - Hypocalcaemia [Unknown]
  - Hyperkalaemia [Unknown]
  - Renal tubular acidosis [Unknown]
  - Developmental delay [Unknown]
  - Cerebral haemorrhage neonatal [Unknown]
  - Adrenal insufficiency neonatal [Unknown]
  - Foetal exposure during pregnancy [Unknown]
  - Neonatal respiratory distress syndrome [Unknown]
  - Patent ductus arteriosus [Unknown]
